FAERS Safety Report 4700615-7 (Version None)
Quarter: 2005Q2

REPORT INFORMATION
  Report Type: 
  Country: None (occurrence: None)
  Receive Date: 20050627
  Receipt Date: 20050616
  Transmission Date: 20051028
  Serious: Yes (Hospitalization)
  Sender: FDA-Public Use
  Company Number: 2005080872

PATIENT
  Age: 53 Year
  Sex: Male
  Weight: 66.5 kg

DRUGS (4)
  1. LIPITOR [Suspect]
     Indication: HYPERCHOLESTEROLAEMIA
     Dosage: 10 MG, ORAL
     Route: 048
     Dates: start: 20030101, end: 20050516
  2. LOXONIN (LOXOPROFEN SODIUM) [Suspect]
     Indication: HEADACHE
     Dosage: 60 MG (1 IN 2 D), ORAL
     Route: 048
     Dates: start: 20050401
  3. ASPIRIN [Concomitant]
     Indication: CEREBRAL INFARCTION
     Dosage: 100 MG, ORAL
     Route: 048
     Dates: start: 20050509, end: 20050517
  4. ALLOPURINOL [Concomitant]
     Indication: HYPERURICAEMIA
     Dosage: ORAL
     Route: 048
     Dates: start: 20030101, end: 20050517

REACTIONS (2)
  - MENINGITIS [None]
  - RHABDOMYOLYSIS [None]
